FAERS Safety Report 13627857 (Version 1)
Quarter: 2017Q2

REPORT INFORMATION
  Report Type: Spontaneous
  Country: US (occurrence: US)
  Receive Date: 20170607
  Receipt Date: 20170607
  Transmission Date: 20170830
  Serious: Yes (Life-Threatening, Hospitalization, Disabling)
  Sender: FDA-Public Use
  Company Number: None

PATIENT
  Age: 42 Year
  Sex: Female
  Weight: 51.75 kg

DRUGS (6)
  1. Q10 [Concomitant]
  2. ATIVAN [Suspect]
     Active Substance: LORAZEPAM
     Indication: PRODUCT USED FOR UNKNOWN INDICATION
     Route: 042
     Dates: start: 20170408, end: 20170408
  3. HYDROXINE [Concomitant]
     Active Substance: HYDROXYZINE HYDROCHLORIDE
  4. LISINOPRIL. [Concomitant]
     Active Substance: LISINOPRIL
  5. VITAMINS [Concomitant]
     Active Substance: VITAMINS
  6. MECCLIZINE [Concomitant]

REACTIONS (5)
  - Vestibular disorder [None]
  - Hypoacusis [None]
  - Balance disorder [None]
  - Abasia [None]
  - Fall [None]

NARRATIVE: CASE EVENT DATE: 20170408
